FAERS Safety Report 12697279 (Version 1)
Quarter: 2016Q3

REPORT INFORMATION
  Report Type: Spontaneous
  Country: US (occurrence: None)
  Receive Date: 20160829
  Receipt Date: 20160829
  Transmission Date: 20161109
  Serious: Yes (Other)
  Sender: FDA-Public Use
  Company Number: None

PATIENT
  Age: 29 Year
  Sex: Male
  Weight: 106.6 kg

DRUGS (3)
  1. MONTELUKAST [Suspect]
     Active Substance: MONTELUKAST SODIUM
     Indication: ASTHMA
     Route: 048
     Dates: start: 20160812, end: 20160813
  2. MONTELUKAST [Suspect]
     Active Substance: MONTELUKAST SODIUM
     Indication: HYPERSENSITIVITY
     Route: 048
     Dates: start: 20160812, end: 20160813
  3. NASAL SALINE SPRAY [Concomitant]

REACTIONS (6)
  - Nightmare [None]
  - Impaired work ability [None]
  - Abnormal dreams [None]
  - Feeling abnormal [None]
  - Insomnia [None]
  - Affective disorder [None]

NARRATIVE: CASE EVENT DATE: 20160813
